FAERS Safety Report 6019902-8 (Version None)
Quarter: 2008Q4

REPORT INFORMATION
  Report Type: 
  Country: None (occurrence: None)
  Receive Date: 20081222
  Receipt Date: 20081217
  Transmission Date: 20090506
  Serious: Yes (Death, Hospitalization)
  Sender: FDA-Public Use
  Company Number: CLOF-1000178

PATIENT
  Age: 60 Year
  Sex: Female
  Weight: 80.2 kg

DRUGS (38)
  1. CLOLAR [Suspect]
     Indication: ACUTE MYELOID LEUKAEMIA
     Dosage: 53.1 MG, QDX5; INTRAVENOUS
     Route: 042
     Dates: start: 20080319, end: 20080323
  2. BUSULFAN (BUSULFAN) [Suspect]
     Indication: ACUTE MYELOID LEUKAEMIA
     Dosage: 191 MG, QD; INTRAVENOUS; 110 MG, QD; INTRAVENOUS
     Route: 042
     Dates: start: 20080320, end: 20080321
  3. BUSULFAN (BUSULFAN) [Suspect]
     Indication: ACUTE MYELOID LEUKAEMIA
     Dosage: 191 MG, QD; INTRAVENOUS; 110 MG, QD; INTRAVENOUS
     Route: 042
     Dates: start: 20080322, end: 20080323
  4. ACYCLOVIR [Concomitant]
  5. ACTIGALL [Concomitant]
  6. ATIVAN [Concomitant]
  7. BUMEX [Concomitant]
  8. MAGNESIUM SULFATE [Concomitant]
  9. MEPRON [Concomitant]
  10. MICAFUNGIN (MICAFUNGIN) [Concomitant]
  11. OXYCODONE HCL [Concomitant]
  12. NEXIUM (ESOMEPRAZOLE SODIUM) [Concomitant]
  13. NYSTATIN [Concomitant]
  14. PHENERGAN (SODIUM CITRATE, SULFOGAIACOL) [Concomitant]
  15. RESTASIS (CICLOSPORIN) [Concomitant]
  16. TACROLIMUS [Concomitant]
  17. TESSALON [Concomitant]
  18. THERA TEARS (CARMELLOSE) [Concomitant]
  19. TRIAMCINOLONE ACETONIDE [Concomitant]
  20. DOXYCYCLINE HYCLATE (DOXYCYCLINE HYCLATE) [Concomitant]
  21. MYCOPHENOLATE MOFETIL [Concomitant]
  22. PHENAZOPYRIDINE HYDROCHLORIDE (PHENAZOPYRIDINE HYDROCHLORIDE) [Concomitant]
  23. POTASSIUM CHLORIDE [Concomitant]
  24. TERCONAZOLE (TERCONAZOLE) [Concomitant]
  25. LOPERAMIDE HYDROCHLORIDE [Concomitant]
  26. LEVOFLOXACIN [Concomitant]
  27. VORICONAZOLE (VORICONAZOLE) [Concomitant]
  28. PANTOPRAZOLE SODIUM [Concomitant]
  29. ONDANSETRON HYDROCHLORIDE [Concomitant]
  30. AMLODIPINE ESYLATE (AMLODIPINE BESILATE) [Concomitant]
  31. FILGRASTIM (FILGRASTIM) [Concomitant]
  32. MEROPENEM (MEROPENEM) [Concomitant]
  33. LORAZEPAM [Concomitant]
  34. PHENYTOIN SODIUM EXTENDED (PHENYTOIN SODIUM) [Concomitant]
  35. BUMETANIDE [Concomitant]
  36. METORPOLOLTARTRAAT A (METOPROLOL TARTRATE) [Concomitant]
  37. URSODIOL [Concomitant]
  38. CYCLOSPORINE [Concomitant]

REACTIONS (23)
  - ACUTE GRAFT VERSUS HOST DISEASE IN SKIN [None]
  - ACUTE MYELOID LEUKAEMIA RECURRENT [None]
  - ATELECTASIS [None]
  - CULTURE STOOL POSITIVE [None]
  - DEEP VEIN THROMBOSIS [None]
  - DISEASE PROGRESSION [None]
  - DISSEMINATED INTRAVASCULAR COAGULATION [None]
  - ENTEROCOCCAL INFECTION [None]
  - HAEMANGIOMA OF LIVER [None]
  - HAEMOSIDEROSIS [None]
  - HEPATIC CYST [None]
  - HYPERGLYCAEMIA [None]
  - HYPERMAGNESAEMIA [None]
  - HYPERTENSION [None]
  - INFECTION [None]
  - ORAL CANDIDIASIS [None]
  - PORTAL HYPERTENSION [None]
  - PULMONARY OEDEMA [None]
  - RETROGRADE PORTAL VEIN FLOW [None]
  - SPLENIC INFECTION [None]
  - SPLENIC LESION [None]
  - SPLENOMEGALY [None]
  - VENOOCCLUSIVE LIVER DISEASE [None]
